FAERS Safety Report 6978838-6 (Version None)
Quarter: 2010Q3

REPORT INFORMATION
  Report Type: 
  Country: None (occurrence: None)
  Receive Date: 20100913
  Receipt Date: 20100901
  Transmission Date: 20110219
  Serious: Yes (Other)
  Sender: FDA-Public Use
  Company Number: US-PFIZER INC-2010079201

PATIENT
  Sex: Male
  Weight: 53 kg

DRUGS (4)
  1. CHANTIX [Suspect]
     Indication: SMOKING CESSATION THERAPY
     Dosage: 0.5 MG, 1X/DAY
     Route: 048
     Dates: start: 20100418, end: 20100401
  2. CHANTIX [Suspect]
     Dosage: 0.5 MG, 2X/DAY
     Route: 048
     Dates: start: 20100602
  3. CHANTIX [Suspect]
     Dosage: 1 MG, 2X/DAY
     Route: 048
     Dates: start: 20100401, end: 20100808
  4. ALPRAZOLAM [Concomitant]
     Indication: ANXIETY
     Dosage: 0.5 MG, EVERY 4 TO 6 HOURS

REACTIONS (4)
  - AGITATION [None]
  - ANXIETY [None]
  - LOGORRHOEA [None]
  - MANIA [None]
